FAERS Safety Report 19913619 (Version 2)
Quarter: 2022Q1

REPORT INFORMATION
  Report Type: Report from Study
  Country: PL (occurrence: PL)
  Receive Date: 20211004
  Receipt Date: 20220118
  Transmission Date: 20220423
  Serious: Yes (Death, Life-Threatening, Hospitalization)
  Sender: FDA-Public Use
  Company Number: PL-ASTRAZENECA-2021A333232

PATIENT
  Age: 57 Year
  Sex: Female

DRUGS (30)
  1. TRASTUZUMAB DERUXTECAN [Suspect]
     Active Substance: TRASTUZUMAB DERUXTECAN
     Indication: Triple negative breast cancer
     Dosage: 335 MG, ONCE EVERY 3 WK
     Route: 042
     Dates: start: 20201215, end: 20201215
  2. TRASTUZUMAB DERUXTECAN [Suspect]
     Active Substance: TRASTUZUMAB DERUXTECAN
     Dosage: 335 MG, ONCE EVERY 3 WK
     Route: 042
     Dates: start: 20210105, end: 20210105
  3. TRASTUZUMAB DERUXTECAN [Suspect]
     Active Substance: TRASTUZUMAB DERUXTECAN
     Dosage: 335 MG, ONCE EVERY 3 WK
     Route: 042
     Dates: start: 20210126, end: 20210126
  4. TRASTUZUMAB DERUXTECAN [Suspect]
     Active Substance: TRASTUZUMAB DERUXTECAN
     Dosage: 335 MG, ONCE EVERY 3 WK
     Route: 042
     Dates: start: 20210218, end: 20210218
  5. TRASTUZUMAB DERUXTECAN [Suspect]
     Active Substance: TRASTUZUMAB DERUXTECAN
     Dosage: 313 MG, ONCE EVERY 3 WK
     Route: 042
     Dates: start: 20210408, end: 20210408
  6. DURVALUMAB [Suspect]
     Active Substance: DURVALUMAB
     Indication: Triple negative breast cancer
     Dosage: 1120 MG, ONCE EVERY 3 WK
     Route: 042
     Dates: start: 20201215, end: 20201215
  7. DURVALUMAB [Suspect]
     Active Substance: DURVALUMAB
     Dosage: 1120 MG, ONCE EVERY 3 WK
     Route: 042
     Dates: start: 20210105, end: 20210105
  8. DURVALUMAB [Suspect]
     Active Substance: DURVALUMAB
     Dosage: 1120 MG, ONCE EVERY 3 WK
     Route: 042
     Dates: start: 20210126, end: 20210126
  9. DURVALUMAB [Suspect]
     Active Substance: DURVALUMAB
     Dosage: 1120 MG, ONCE EVERY 3 WK
     Route: 042
     Dates: start: 20210218, end: 20210218
  10. DURVALUMAB [Suspect]
     Active Substance: DURVALUMAB
     Dosage: 1120 MG, ONCE EVERY 3 WK
     Route: 042
     Dates: start: 20210408, end: 20210408
  11. RAMIPRIL [Concomitant]
     Active Substance: RAMIPRIL
     Indication: Hypertension
     Route: 048
     Dates: start: 2010
  12. AMLODIPINE BESYLATE [Concomitant]
     Active Substance: AMLODIPINE BESYLATE
     Indication: Hypertension
     Dosage: 5 MG
     Route: 048
     Dates: start: 2017
  13. MESALAMINE [Concomitant]
     Active Substance: MESALAMINE
     Indication: Colitis ulcerative
     Dosage: 500 MG
     Route: 048
     Dates: start: 2001
  14. MESALAMINE [Concomitant]
     Active Substance: MESALAMINE
     Dosage: 5 DF
     Route: 048
     Dates: start: 20210422
  15. ATOSSA [Concomitant]
     Indication: Antiemetic supportive care
     Dosage: 8 MG
     Route: 048
     Dates: start: 20201215
  16. PANZOL CONTROL [Concomitant]
     Indication: Pharyngitis
     Dosage: 20 MG
     Route: 048
     Dates: start: 20210223
  17. ACETAMINOPHEN [Concomitant]
     Active Substance: ACETAMINOPHEN
     Indication: Pharyngitis
     Dosage: 500 MG
     Route: 048
     Dates: start: 20210218, end: 20210223
  18. ACETAMINOPHEN [Concomitant]
     Active Substance: ACETAMINOPHEN
     Dosage: 500 MG
     Route: 048
     Dates: start: 20210226
  19. IBUPROFEN [Concomitant]
     Active Substance: IBUPROFEN
     Indication: Pharyngitis
     Dosage: 400 MG
     Route: 048
     Dates: start: 20210218, end: 20210223
  20. IBUPROFEN [Concomitant]
     Active Substance: IBUPROFEN
     Dosage: 400 MG
     Route: 048
     Dates: start: 20210324
  21. ENOXAPARIN SODIUM [Concomitant]
     Active Substance: ENOXAPARIN SODIUM
     Indication: COVID-19
     Dosage: 60 MG
     Route: 058
     Dates: start: 20210307
  22. ENOXAPARIN SODIUM [Concomitant]
     Active Substance: ENOXAPARIN SODIUM
     Dosage: 1 AMPULE, DAILY
     Route: 058
     Dates: start: 20210418, end: 20210418
  23. ENOXAPARIN SODIUM [Concomitant]
     Active Substance: ENOXAPARIN SODIUM
     Dosage: 1 AMPULE, TWO TIMES A DAY
     Route: 058
     Dates: start: 20210418
  24. PABI-DEXAMETHASON [Concomitant]
     Indication: COVID-19
     Dosage: 6 MG
     Route: 048
     Dates: start: 20210323
  25. CEFUROXIME [Concomitant]
     Active Substance: CEFUROXIME
     Indication: Pyrexia
     Dosage: 500 MG
     Route: 048
     Dates: start: 20210415
  26. ONDANSETRON [Concomitant]
     Active Substance: ONDANSETRON
     Indication: Premedication
     Dosage: 8 MG
     Route: 042
     Dates: start: 20201215, end: 20201215
  27. ONDANSETRON [Concomitant]
     Active Substance: ONDANSETRON
     Dosage: 8 MG
     Route: 042
     Dates: start: 20210105, end: 20210105
  28. ONDANSETRON [Concomitant]
     Active Substance: ONDANSETRON
     Dosage: 8 MG
     Route: 042
     Dates: start: 20210126, end: 20210126
  29. ONDANSETRON [Concomitant]
     Active Substance: ONDANSETRON
     Dosage: 8 MG
     Route: 042
     Dates: start: 20210218, end: 20210218
  30. ONDANSETRON [Concomitant]
     Active Substance: ONDANSETRON
     Dosage: 8 MG
     Route: 042
     Dates: start: 20210408, end: 20210408

REACTIONS (1)
  - COVID-19 pneumonia [Fatal]

NARRATIVE: CASE EVENT DATE: 20210417
